FAERS Safety Report 8373284-5 (Version None)
Quarter: 2012Q2

REPORT INFORMATION
  Report Type: 
  Country: None (occurrence: None)
  Receive Date: 20120521
  Receipt Date: 20110405
  Transmission Date: 20120825
  Serious: Yes (Other)
  Sender: FDA-Public Use
  Company Number: US-TEVA-2011001654

PATIENT
  Sex: Male

DRUGS (1)
  1. TREANDA [Suspect]
     Route: 041
     Dates: start: 20110405

REACTIONS (2)
  - INFUSION SITE ERYTHEMA [None]
  - INFUSION SITE EXTRAVASATION [None]
